FAERS Safety Report 11099002 (Version 2)
Quarter: 2015Q3

REPORT INFORMATION
  Report Type: Spontaneous
  Country: US (occurrence: US)
  Receive Date: 20150508
  Receipt Date: 20150701
  Transmission Date: 20151125
  Serious: No
  Sender: FDA-Public Use
  Company Number: US-ASTRAZENECA-2015SE40582

PATIENT
  Sex: Male

DRUGS (2)
  1. BUDESONIDE. [Suspect]
     Active Substance: BUDESONIDE
     Indication: APPENDICITIS
     Dosage: EVERY DAY
     Route: 048
     Dates: start: 2011
  2. NEXIUM [Suspect]
     Active Substance: ESOMEPRAZOLE MAGNESIUM
     Route: 048

REACTIONS (6)
  - Activities of daily living impaired [Unknown]
  - Asthenia [Unknown]
  - Off label use [Unknown]
  - Drug dose omission [Unknown]
  - Feeding disorder [Unknown]
  - Intentional product misuse [Unknown]
